FAERS Safety Report 15696055 (Version 1)
Quarter: 2018Q4

REPORT INFORMATION
  Report Type: Spontaneous
  Country: US (occurrence: US)
  Receive Date: 20181206
  Receipt Date: 20181206
  Transmission Date: 20190205
  Serious: No
  Sender: FDA-Public Use
  Company Number: US-PFIZER INC-2017549964

PATIENT
  Sex: Female
  Weight: 79 kg

DRUGS (2)
  1. CELEXA [CITALOPRAM HYDROBROMIDE] [Concomitant]
     Indication: DEPRESSION
     Dosage: 40 MG, 1X/DAY
  2. XELJANZ [Suspect]
     Active Substance: TOFACITINIB CITRATE
     Indication: RHEUMATOID ARTHRITIS
     Dosage: 5 MG, 2X/DAY
     Dates: start: 2015

REACTIONS (1)
  - Drug ineffective [Unknown]
